FAERS Safety Report 12692300 (Version 1)
Quarter: 2016Q3

REPORT INFORMATION
  Report Type: Spontaneous
  Country: NO (occurrence: NO)
  Receive Date: 20160828
  Receipt Date: 20160828
  Transmission Date: 20161109
  Serious: Yes (Hospitalization)
  Sender: FDA-Public Use
  Company Number: PHHY2016NO115245

PATIENT
  Age: 69 Year
  Sex: Male

DRUGS (8)
  1. TITRALAC [Interacting]
     Active Substance: CALCIUM CARBONATE
     Indication: GASTROOESOPHAGEAL REFLUX DISEASE
     Dosage: 10-20 TABLETS DAILY IN THE LAST 10 DAYS, 17 TABLETS WEEKLY DURING THE LAST 20 YEARS
     Route: 048
     Dates: start: 1996, end: 201607
  2. METOPROLOL TARTRATE. [Concomitant]
     Active Substance: METOPROLOL TARTRATE
     Indication: PRODUCT USED FOR UNKNOWN INDICATION
     Route: 048
     Dates: start: 201012
  3. NEXIUM [Concomitant]
     Active Substance: ESOMEPRAZOLE MAGNESIUM
     Indication: PRODUCT USED FOR UNKNOWN INDICATION
     Dosage: AS NEEDED.
     Route: 048
  4. CALCIFEDIOL [Concomitant]
     Active Substance: CALCIFEDIOL
     Indication: PRODUCT USED FOR UNKNOWN INDICATION
     Dosage: UNK DF, UNK (TOOK ONE CAPSULE OF CALCIPHEROL DUE TO NAUSEA)
     Route: 048
     Dates: start: 20160718, end: 20160718
  5. SIMVASTATIN. [Concomitant]
     Active Substance: SIMVASTATIN
     Indication: PRODUCT USED FOR UNKNOWN INDICATION
     Route: 048
     Dates: start: 201012
  6. DIOVAN COMP [Suspect]
     Active Substance: HYDROCHLOROTHIAZIDE\VALSARTAN
     Indication: PRODUCT USED FOR UNKNOWN INDICATION
     Dosage: 80 MG/12,5 MG DAILY
     Route: 048
     Dates: start: 201012, end: 201607
  7. IBUX [Concomitant]
     Active Substance: IBUPROFEN
     Indication: PRODUCT USED FOR UNKNOWN INDICATION
     Dosage: AS NEEDED (THE PATIENT TOOK 1 IBUX DAILY FOR 3 DAYS IN THE PERIOD WHEN THE SYMPTOMS APPEARED)
     Route: 048
  8. ALBYL-E [Concomitant]
     Active Substance: ASPIRIN\MAGNESIUM OXIDE
     Indication: PRODUCT USED FOR UNKNOWN INDICATION
     Route: 048
     Dates: start: 201012

REACTIONS (5)
  - Acute kidney injury [Recovering/Resolving]
  - Asthenia [Recovering/Resolving]
  - Hyperkalaemia [Recovering/Resolving]
  - Delirium [Recovering/Resolving]
  - Syncope [Recovering/Resolving]

NARRATIVE: CASE EVENT DATE: 201607
